FAERS Safety Report 20305777 (Version 2)
Quarter: 2022Q2

REPORT INFORMATION
  Report Type: Other
  Country: US (occurrence: None)
  Receive Date: 20220106
  Receipt Date: 20220414
  Transmission Date: 20220721
  Serious: No
  Sender: FDA-Public Use
  Company Number: US-ROCHE-2996534

PATIENT
  Sex: Female

DRUGS (4)
  1. OCREVUS [Suspect]
     Active Substance: OCRELIZUMAB
     Indication: Relapsing-remitting multiple sclerosis
     Dosage: PREVIOUS DATE OF TREATMENT: 07/MAR/2019, 11/DEC/2019.
     Route: 065
  2. NURTEC ODT [Concomitant]
     Active Substance: RIMEGEPANT SULFATE
  3. OXYBUTYNIN [Concomitant]
     Active Substance: OXYBUTYNIN
  4. TIZANIDINE [Concomitant]
     Active Substance: TIZANIDINE

REACTIONS (2)
  - COVID-19 [Unknown]
  - Upper respiratory tract infection [Unknown]
